FAERS Safety Report 7531238-2 (Version None)
Quarter: 2011Q2

REPORT INFORMATION
  Report Type: 
  Country: None (occurrence: None)
  Receive Date: 20110608
  Receipt Date: 20110531
  Transmission Date: 20111010
  Serious: Yes (Other)
  Sender: FDA-Public Use
  Company Number: BR-BAYER-2011-012403

PATIENT
  Age: 20 Year
  Sex: Female

DRUGS (1)
  1. LEVONORGESTREL + ETHINYL ESTRADIOL [Suspect]
     Indication: CONTRACEPTION
     Dosage: 1 DF, QD
     Route: 048
     Dates: start: 20100801, end: 20110101

REACTIONS (4)
  - PREGNANCY ON ORAL CONTRACEPTIVE [None]
  - ANTEPARTUM HAEMORRHAGE [None]
  - UTERINE HAEMORRHAGE [None]
  - AMENORRHOEA [None]
